FAERS Safety Report 22535744 (Version 1)
Quarter: 2023Q2

REPORT INFORMATION
  Report Type: Spontaneous
  Country: US (occurrence: US)
  Receive Date: 20230608
  Receipt Date: 20230608
  Transmission Date: 20230722
  Serious: No
  Sender: FDA-Public Use
  Company Number: US-SA-SAC20230607000129

PATIENT
  Age: 48 Year
  Sex: Male

DRUGS (8)
  1. ALPROLIX [Suspect]
     Active Substance: EFTRENONACOG ALFA
     Indication: Factor IX deficiency
     Dosage: 3000 U (INFUSE 11,200 UNITS (10,080-12,320) SLOW IV PUSH), QW
     Route: 042
     Dates: start: 202303
  2. ALPROLIX [Suspect]
     Active Substance: EFTRENONACOG ALFA
     Indication: Factor IX deficiency
     Dosage: 3000 U (INFUSE 11,200 UNITS (10,080-12,320) SLOW IV PUSH), QW
     Route: 042
     Dates: start: 202303
  3. ALPROLIX [Suspect]
     Active Substance: EFTRENONACOG ALFA
     Dosage: 3000 U (INFUSE 11,200 UNITS (10,080-12,320) SLOW IV PUSH), QD
     Route: 042
     Dates: start: 202303
  4. ALPROLIX [Suspect]
     Active Substance: EFTRENONACOG ALFA
     Dosage: 3000 U (INFUSE 11,200 UNITS (10,080-12,320) SLOW IV PUSH), QD
     Route: 042
     Dates: start: 202303
  5. ALPROLIX [Suspect]
     Active Substance: EFTRENONACOG ALFA
     Dosage: 4000 U (INFUSE 11,200 UNITS (10,080-12,320) SLOW IV PUSH), QW
     Route: 042
     Dates: start: 2023
  6. ALPROLIX [Suspect]
     Active Substance: EFTRENONACOG ALFA
     Dosage: 4000 U (INFUSE 11,200 UNITS (10,080-12,320) SLOW IV PUSH), QW
     Route: 042
     Dates: start: 2023
  7. ALPROLIX [Suspect]
     Active Substance: EFTRENONACOG ALFA
     Dosage: 4000 U (INFUSE 11,200 UNITS (10,080-12,320) SLOW IV PUSH), QD
     Route: 042
     Dates: start: 2023
  8. ALPROLIX [Suspect]
     Active Substance: EFTRENONACOG ALFA
     Dosage: 4000 U (INFUSE 11,200 UNITS (10,080-12,320) SLOW IV PUSH), QD
     Route: 042
     Dates: start: 2023

REACTIONS (1)
  - Epistaxis [Unknown]

NARRATIVE: CASE EVENT DATE: 20230601
